FAERS Safety Report 9828498 (Version 1)
Quarter: 2014Q1

REPORT INFORMATION
  Report Type: Spontaneous
  Country: CA (occurrence: CA)
  Receive Date: 20140117
  Receipt Date: 20140117
  Transmission Date: 20141002
  Serious: Yes (Hospitalization)
  Sender: FDA-Public Use
  Company Number: CA-CUBIST PHARMACEUTICAL, INC.-2014CBST000045

PATIENT
  Sex: 0

DRUGS (3)
  1. CUBICIN [Suspect]
     Indication: STAPHYLOCOCCAL INFECTION
     Dosage: UNK UNK, UNK
     Route: 065
  2. ERTAPENEM [Concomitant]
     Indication: BACTERIAL INFECTION
     Dosage: UNK UNK, UNK
     Route: 065
  3. MELATONIN [Concomitant]
     Indication: INSOMNIA
     Dosage: UNK UNK, UNK
     Route: 065

REACTIONS (3)
  - Dehydration [Unknown]
  - Malaise [Unknown]
  - Rash [Unknown]
